FAERS Safety Report 7805324-3 (Version None)
Quarter: 2011Q4

REPORT INFORMATION
  Report Type: 
  Country: None (occurrence: None)
  Receive Date: 20111010
  Receipt Date: 20110930
  Transmission Date: 20120403
  Serious: Yes (Hospitalization)
  Sender: FDA-Public Use
  Company Number: BR-ASTRAZENECA-2011SE59000

PATIENT
  Age: 74 Year
  Sex: Female
  Weight: 84 kg

DRUGS (5)
  1. ATACAND HCT [Suspect]
     Indication: HYPERTENSION
     Dosage: 8/12.5 MG
     Route: 048
  2. ANTI-INFLAMMATORY MEDICATIONS [Suspect]
     Indication: EXOSTOSIS
     Route: 048
  3. ANTI-INFLAMMATORY MEDICATIONS [Suspect]
     Indication: OSTEOARTHRITIS
     Route: 048
  4. ANTI-INFLAMMATORY MEDICATIONS [Suspect]
     Indication: BURSITIS
     Route: 048
  5. SYNTHROID [Concomitant]
     Indication: POST PROCEDURAL HYPOTHYROIDISM
     Route: 048
     Dates: start: 20100101

REACTIONS (6)
  - EXOSTOSIS [None]
  - BACK PAIN [None]
  - OSTEOARTHRITIS [None]
  - BURSITIS [None]
  - ABDOMINAL PAIN UPPER [None]
  - THYROID NEOPLASM [None]
